FAERS Safety Report 11832776 (Version 1)
Quarter: 2015Q4

REPORT INFORMATION
  Report Type: Spontaneous
  Country: FR (occurrence: FR)
  Receive Date: 20151214
  Receipt Date: 20151214
  Transmission Date: 20160305
  Serious: Yes (Hospitalization)
  Sender: FDA-Public Use
  Company Number: FR-TEVA-615738ISR

PATIENT
  Sex: Male
  Weight: 70 kg

DRUGS (6)
  1. TACO [Concomitant]
     Dosage: 500 MILLIGRAM DAILY;
  2. MODIODAL 200 MG [Suspect]
     Active Substance: MODAFINIL
     Indication: NARCOLEPSY
     Dosage: 1 DOSAGE FORMS DAILY;
     Dates: start: 1981
  3. FENOFIBRATE 100 MG [Suspect]
     Active Substance: FENOFIBRATE
     Indication: HYPERCHOLESTEROLAEMIA
     Dosage: 1 DOSAGE FORMS DAILY;
     Dates: start: 2005
  4. OMEPRAZOLE. [Concomitant]
     Active Substance: OMEPRAZOLE
     Dosage: 20 MILLIGRAM DAILY;
  5. HUMIRA [Suspect]
     Active Substance: ADALIMUMAB
     Indication: ANKYLOSING SPONDYLITIS
     Dosage: .0714 DOSAGE FORMS DAILY;
     Route: 058
     Dates: start: 2003
  6. KARDEGIC [Concomitant]
     Active Substance: ASPIRIN LYSINE
     Dosage: 75 MILLIGRAM DAILY;

REACTIONS (3)
  - Disturbance in attention [Not Recovered/Not Resolved]
  - Executive dysfunction [Not Recovered/Not Resolved]
  - Memory impairment [Not Recovered/Not Resolved]

NARRATIVE: CASE EVENT DATE: 2010
